FAERS Safety Report 17272929 (Version 2)
Quarter: 2020Q1

REPORT INFORMATION
  Report Type: Spontaneous
  Country: US (occurrence: US)
  Receive Date: 20200115
  Receipt Date: 20200318
  Transmission Date: 20200409
  Serious: No
  Sender: FDA-Public Use
  Company Number: US-BAYER-2020-001135

PATIENT
  Age: 24 Year
  Sex: Female

DRUGS (2)
  1. KYLEENA [Suspect]
     Active Substance: LEVONORGESTREL
     Indication: MENSTRUATION IRREGULAR
  2. KYLEENA [Suspect]
     Active Substance: LEVONORGESTREL
     Indication: ENDOMETRIOSIS
     Dosage: 17.5 MCG/24HR, CONT
     Route: 015
     Dates: start: 20190911, end: 20191219

REACTIONS (5)
  - Off label use of device [None]
  - Device use issue [None]
  - Device use issue [None]
  - Device deployment issue [None]
  - Device expulsion [Recovered/Resolved]

NARRATIVE: CASE EVENT DATE: 20190911
